FAERS Safety Report 10246851 (Version 1)
Quarter: 2014Q2

REPORT INFORMATION
  Report Type: Spontaneous
  Country: CA (occurrence: CA)
  Receive Date: 20140619
  Receipt Date: 20140619
  Transmission Date: 20141212
  Serious: Yes (Death, Other)
  Sender: FDA-Public Use
  Company Number: CA-ASTRAZENECA-2014SE44429

PATIENT
  Age: 39 Year
  Sex: Male
  Weight: 113.4 kg

DRUGS (3)
  1. SEROQUEL [Suspect]
     Indication: AGITATION
     Route: 048
  2. RISPERIDONE [Concomitant]
  3. LORAZEPAM [Concomitant]

REACTIONS (8)
  - Completed suicide [Fatal]
  - Suicidal ideation [Unknown]
  - Physical assault [Unknown]
  - Psychotic disorder [Unknown]
  - Homicide [Unknown]
  - Emotional disorder [Unknown]
  - Homicidal ideation [Unknown]
  - Drug dose omission [Unknown]
